FAERS Safety Report 20317778 (Version 1)
Quarter: 2022Q1

REPORT INFORMATION
  Report Type: Report from Study
  Country: IT (occurrence: IT)
  Receive Date: 20220110
  Receipt Date: 20220110
  Transmission Date: 20220423
  Serious: Yes (Other)
  Sender: FDA-Public Use
  Company Number: IT-ROCHE-2766299

PATIENT
  Age: 62 Year
  Sex: Female
  Weight: 99 kg

DRUGS (31)
  1. METHOTREXATE [Suspect]
     Active Substance: METHOTREXATE
     Indication: Breast cancer
     Dosage: 5 MILLIGRAM(11/DEC/2019 RECEIVED MOST RECENT DOSE PRIOR TO THE EVENT)
     Route: 048
     Dates: start: 20191030, end: 20191127
  2. DOCETAXEL [Suspect]
     Active Substance: DOCETAXEL
     Indication: Breast cancer
     Dosage: 150 MILLIGRAM, Q3W
     Route: 042
     Dates: start: 20170424, end: 20170816
  3. CAPECITABINE [Suspect]
     Active Substance: CAPECITABINE
     Indication: Breast cancer
     Dosage: 4000 MILLIGRAM, QD
     Route: 048
     Dates: start: 20180521, end: 20180904
  4. TRASTUZUMAB [Suspect]
     Active Substance: TRASTUZUMAB
     Indication: Breast cancer
     Dosage: 816 MILLIGRAM, Q3W (ON 27/SEP/2017, RECEIVED MOST RECENT DOSE PRIOR TO THE EVENT)
     Route: 041
     Dates: start: 20170424, end: 20170424
  5. TRASTUZUMAB [Suspect]
     Active Substance: TRASTUZUMAB
     Dosage: 840 MILLIGRAM, Q3W, ON 09/JUN/2020 RECEIVED MOST RECENT DOSE PRIOR TO THE EVENT
     Route: 042
     Dates: start: 20190307, end: 20190307
  6. TRASTUZUMAB [Suspect]
     Active Substance: TRASTUZUMAB
     Dosage: 30 MILLIGRAM, Q3W
     Route: 042
     Dates: start: 20190404, end: 20200422
  7. TRASTUZUMAB [Suspect]
     Active Substance: TRASTUZUMAB
     Dosage: 480 MILLIGRAM, Q3W
     Route: 042
     Dates: start: 20200609
  8. CARBOPLATIN [Suspect]
     Active Substance: CARBOPLATIN
     Indication: Breast cancer
     Dosage: 600 MILLIGRAM, Q3W (ON 28/JUL/2020 RECEIVED MOST RECENT DOSE PRIOR TO THE EVENT)
     Route: 042
     Dates: start: 20200422, end: 20200422
  9. ADO-TRASTUZUMAB EMTANSINE [Suspect]
     Active Substance: ADO-TRASTUZUMAB EMTANSINE
     Indication: Breast cancer
     Dosage: 75 MILLIGRAM, Q3W (26/SEP/2018 RECEIVED MOST RECENT DOSE PRIOR TO THE EVENT)
     Route: 058
     Dates: start: 20180905, end: 20180905
  10. ADO-TRASTUZUMAB EMTANSINE [Suspect]
     Active Substance: ADO-TRASTUZUMAB EMTANSINE
     Dosage: 840 MILLIGRAM, Q3W (ON 09/JUN/2020 RECEIVED MOST RECENT DOSE PRIOR TO THE EVENT)
     Route: 042
     Dates: start: 20190307, end: 20190307
  11. EPIRUBICIN [Suspect]
     Active Substance: EPIRUBICIN
     Indication: Breast cancer
     Dosage: 130 MILLIGRAM, Q3W
     Route: 042
     Dates: start: 20181128, end: 20190130
  12. VINORELBINE [Suspect]
     Active Substance: VINORELBINE TARTRATE
     Indication: Breast cancer
     Dosage: ON 02/MAY/2019 RECEIVED MOST RECENT DOSE PRIOR TO THE EVENT
     Route: 042
     Dates: start: 20190307, end: 20190404
  13. LAPATINIB [Suspect]
     Active Substance: LAPATINIB
     Indication: Breast cancer
     Dosage: 1250 MILLIGRAM, QD
     Route: 048
     Dates: start: 20180511, end: 20180904
  14. PERTUZUMAB [Suspect]
     Active Substance: PERTUZUMAB
     Indication: Breast cancer
     Dosage: ON 24/MAY/2017, RECEIVED MOST RECENT DOSE PRIOR TO THE EVENT
     Route: 042
     Dates: start: 20170424, end: 20170424
  15. CYCLOPHOSPHAMIDE [Suspect]
     Active Substance: CYCLOPHOSPHAMIDE
     Indication: Breast cancer
     Dosage: ON 04DEC/2029, RECEIVED MOST RECENT DOSE PRIOR TO THE EVENT
     Route: 042
     Dates: start: 20191030
  16. CYCLOPHOSPHAMIDE [Suspect]
     Active Substance: CYCLOPHOSPHAMIDE
     Dosage: 130 MILLIGRAM, Q3W 30/JAN/2019, SHE RECEIVED MOST RECENT DOSE OF CYCLOPHOSPHAMIDE
     Route: 042
     Dates: start: 20181128
  17. ERIBULIN MESYLATE [Suspect]
     Active Substance: ERIBULIN MESYLATE
     Indication: Breast cancer
     Dosage: 2 MILLIGRAM
     Route: 042
     Dates: start: 20201127
  18. NETUPITANT\PALONOSETRON HYDROCHLORIDE [Suspect]
     Active Substance: NETUPITANT\PALONOSETRON HYDROCHLORIDE
     Indication: Breast cancer
     Dosage: 300.5 MILLIGRAM, Q3W
     Route: 042
     Dates: start: 20181128, end: 20190130
  19. ESOMEPRAZOLE [Concomitant]
     Active Substance: ESOMEPRAZOLE
     Dosage: ONGOING CHECKED
     Dates: start: 20200129
  20. METOCLOPRAMIDE [Concomitant]
     Active Substance: METOCLOPRAMIDE
     Dosage: ONGOING CHECKED
     Dates: start: 20200401
  21. VENLAFAXINE HYDROCHLORIDE [Concomitant]
     Active Substance: VENLAFAXINE HYDROCHLORIDE
     Dosage: ONGOING CHECKED
  22. LORATADINE [Concomitant]
     Active Substance: LORATADINE
     Dosage: ONGOING CHECKED
     Dates: start: 20190816
  23. PREDNISONE [Concomitant]
     Active Substance: PREDNISONE
     Dosage: ONGOING CHECKED
     Dates: start: 20200722
  24. RAMIPRIL [Concomitant]
     Active Substance: RAMIPRIL
     Dosage: ONGOING CHECKED
     Dates: start: 20190909
  25. RANITIDINE [Concomitant]
     Active Substance: RANITIDINE
     Dosage: UNK
  26. PALONOSETRON [Concomitant]
     Active Substance: PALONOSETRON
     Dosage: UNK
  27. GRANISETRON [Concomitant]
     Active Substance: GRANISETRON
     Dosage: UNK
  28. DEXAMETHASONE PHOSPHATE [Concomitant]
     Active Substance: DEXAMETHASONE PHOSPHATE
     Dosage: UNK
  29. CHLORPHENIRAMINE MALEATE [Concomitant]
     Active Substance: CHLORPHENIRAMINE MALEATE
     Dosage: UNK
  30. PREDNISONE [Concomitant]
     Active Substance: PREDNISONE
     Dosage: UNK
  31. ESOMEPRAZOLE [Concomitant]
     Active Substance: ESOMEPRAZOLE
     Dosage: ONGOING = CHECKED
     Dates: start: 20200129

REACTIONS (2)
  - Neutropenia [Recovered/Resolved]
  - White blood cell count decreased [Recovered/Resolved]

NARRATIVE: CASE EVENT DATE: 20190327
